FAERS Safety Report 8046680-3 (Version None)
Quarter: 2012Q1

REPORT INFORMATION
  Report Type: 
  Country: None (occurrence: None)
  Receive Date: 20120116
  Receipt Date: 20120109
  Transmission Date: 20120608
  Serious: Yes (Hospitalization)
  Sender: FDA-Public Use
  Company Number: CH-ACCORD-011986

PATIENT
  Age: 29 Year
  Sex: Male

DRUGS (4)
  1. BLEOMYCIN SULFATE [Suspect]
  2. ETOPOSIDE [Suspect]
  3. CARBOPLATIN [Suspect]
  4. CISPLATIN [Suspect]

REACTIONS (2)
  - CEREBRAL VENOUS THROMBOSIS [None]
  - OFF LABEL USE [None]
